FAERS Safety Report 4452797-2 (Version None)
Quarter: 2004Q3

REPORT INFORMATION
  Report Type: 
  Country: None (occurrence: None)
  Receive Date: 20040916
  Receipt Date: 20040907
  Transmission Date: 20050211
  Serious: Yes (Hospitalization, Other)
  Sender: FDA-Public Use
  Company Number: HQWYE840407SEP04

PATIENT
  Age: 70 Year
  Sex: Female

DRUGS (8)
  1. PANTOPRAZOLE SODIUM [Suspect]
     Route: 048
     Dates: end: 20040719
  2. COZAAR [Suspect]
     Dosage: 50 MG 1X PER 1 DAY
     Route: 048
     Dates: start: 20031201, end: 20040720
  3. BISOPROLOL FUMARATE [Suspect]
     Dosage: 10 MG 1X PER 1 DAY
     Route: 048
     Dates: start: 20031201, end: 20040719
  4. PREDNISONE [Concomitant]
  5. DIAMICRON (GLICLAZIDE) [Concomitant]
  6. MOCLAMINE (MOCLOBEMIDE) [Concomitant]
  7. FLECAINIDE ACETATE [Concomitant]
  8. DIGOXIN [Concomitant]

REACTIONS (3)
  - HYPONATRAEMIA [None]
  - IMPLANT SITE INFECTION [None]
  - URINE OUTPUT DECREASED [None]
